FAERS Safety Report 7606005-1 (Version None)
Quarter: 2011Q3

REPORT INFORMATION
  Report Type: 
  Country: None (occurrence: None)
  Receive Date: 20110713
  Receipt Date: 20110629
  Transmission Date: 20111222
  Serious: Yes (Other)
  Sender: FDA-Public Use
  Company Number: PHHY2011JP58614

PATIENT
  Age: 63 Year
  Sex: Female

DRUGS (3)
  1. OMEPRAZOLE [Concomitant]
     Dosage: 20 MG,
     Route: 048
     Dates: start: 20100925
  2. EXFORGE [Suspect]
     Indication: HYPERTENSION
     Dosage: 1 DF, DAILY
     Route: 048
     Dates: start: 20110329, end: 20110401
  3. LIVALO KOWA [Concomitant]
     Dosage: 1 MG,
     Route: 048
     Dates: start: 20110301

REACTIONS (4)
  - NAUSEA [None]
  - HYPOTENSION [None]
  - DIZZINESS [None]
  - BLOOD PRESSURE FLUCTUATION [None]
